FAERS Safety Report 5897695-2 (Version None)
Quarter: 2008Q3

REPORT INFORMATION
  Report Type: 
  Country: None (occurrence: None)
  Receive Date: 20080925
  Receipt Date: 20080913
  Transmission Date: 20090109
  Serious: Yes (Hospitalization, Other)
  Sender: FDA-Public Use
  Company Number: HQWYE282820JUN06

PATIENT
  Sex: Female
  Weight: 59 kg

DRUGS (9)
  1. CYCLOSPORINE [Suspect]
     Indication: PROPHYLAXIS AGAINST TRANSPLANT REJECTION
     Dosage: UNSPECIFIED
  2. ISONIAZID [Concomitant]
     Indication: PROPHYLAXIS
     Dosage: 300 DAILY
     Route: 048
     Dates: start: 20060514, end: 20060524
  3. METHYLPREDNISOLONE [Concomitant]
     Dosage: UNSPECIFIED
     Route: 042
     Dates: start: 20060501, end: 20060501
  4. COTRIM [Concomitant]
     Indication: PROPHYLAXIS
     Dosage: 2 DAILY
     Route: 048
     Dates: start: 20060514
  5. DILTIAZEM HCL [Concomitant]
     Indication: HYPERTENSION
     Dosage: 60 MG ^TDS^
     Route: 048
     Dates: start: 20060423
  6. PREDNISONE [Concomitant]
     Indication: PROPHYLAXIS AGAINST TRANSPLANT REJECTION
     Route: 048
     Dates: start: 20060514, end: 20060101
  7. PREDNISONE [Concomitant]
     Dosage: 10-12.5 MG/D
     Route: 048
     Dates: start: 20060101
  8. MYCOPHENOLATE MOFETIL [Concomitant]
     Indication: PROPHYLAXIS AGAINST TRANSPLANT REJECTION
     Dosage: UNSPECIFIED
  9. VITAMIN B6 [Concomitant]
     Indication: PROPHYLAXIS
     Dosage: 1 DAILY
     Route: 048
     Dates: start: 20060514

REACTIONS (2)
  - BLOOD CREATININE INCREASED [None]
  - PROTEINURIA [None]
